FAERS Safety Report 10673750 (Version 2)
Quarter: 2015Q2

REPORT INFORMATION
  Report Type: Spontaneous
  Country: RS (occurrence: RS)
  Receive Date: 20141224
  Receipt Date: 20150403
  Transmission Date: 20150821
  Serious: Yes (Other)
  Sender: FDA-Public Use
  Company Number: RS-ELI_LILLY_AND_COMPANY-RS201412008676

PATIENT
  Age: 73 Year
  Sex: Female

DRUGS (8)
  1. PROPAFEN                           /00546301/ [Concomitant]
     Dosage: 150 MG, 2X1/2 (UNSPECIFIED)
  2. FORTEO [Suspect]
     Active Substance: TERIPARATIDE
     Indication: PATHOLOGICAL FRACTURE
  3. PHLEBODIA [Concomitant]
     Dosage: 600 MG, QD
  4. CARDIOPIRIN [Concomitant]
     Active Substance: ASPIRIN
     Dosage: 100 MG, QD
  5. ALPHA D3 [Concomitant]
     Dosage: 1 UG, QD
  6. FORTEO [Suspect]
     Active Substance: TERIPARATIDE
     Indication: OSTEOPOROSIS
     Dosage: UNK, UNKNOWN
     Route: 058
     Dates: start: 20130705
  7. INDAPRES [Concomitant]
     Dosage: 1.5 MG, QD
  8. FAMOTIDIN [Concomitant]
     Dosage: 20 MG, QD

REACTIONS (1)
  - Varicophlebitis [Recovered/Resolved]

NARRATIVE: CASE EVENT DATE: 20141120
